FAERS Safety Report 9865695 (Version 2)
Quarter: 2014Q1

REPORT INFORMATION
  Report Type: Spontaneous
  Country: US (occurrence: US)
  Receive Date: 20140203
  Receipt Date: 20140203
  Transmission Date: 20141002
  Serious: No
  Sender: FDA-Public Use
  Company Number: US-ALLERGAN-1306958US

PATIENT
  Age: 92 Year
  Sex: Female

DRUGS (20)
  1. RESTASIS [Suspect]
     Indication: DRY EYE
     Dosage: 2 GTT, QHS
     Route: 047
     Dates: start: 201305
  2. RESTASIS [Suspect]
     Dosage: 2 GTT, BID
     Route: 047
     Dates: start: 201303
  3. RESTASIS [Suspect]
     Dosage: 2 GTT, BID
     Route: 047
  4. LASTACAFT [Suspect]
     Indication: DRY EYE
     Dosage: 2 GTT, QID
     Route: 047
  5. REFRESH TEARS [Suspect]
     Indication: DRY EYE
     Dosage: 2 GTT, QID
     Route: 047
  6. SYSTANE [Suspect]
     Indication: EYE DISORDER
     Dosage: UNK UNK, PRN
     Route: 047
  7. NORVASC                            /00972401/ [Concomitant]
     Indication: HYPERTENSION
     Dosage: 10 MG, QD
     Route: 048
  8. PLAVIX                             /01220701/ [Concomitant]
     Indication: PRODUCT USED FOR UNKNOWN INDICATION
     Dosage: 75 MG, QD
     Route: 048
  9. ZEBETA [Concomitant]
     Indication: CARDIAC DISORDER
     Dosage: 5 MG, QD
     Route: 048
  10. CRESTOR                            /01588601/ [Concomitant]
     Indication: BLOOD CHOLESTEROL INCREASED
     Dosage: 10 MG, QD
     Route: 048
  11. ECOTRIN [Concomitant]
     Indication: PRODUCT USED FOR UNKNOWN INDICATION
     Dosage: 81 MG, QD
     Route: 048
  12. VITAMIN B                          /00056102/ [Concomitant]
     Indication: SUPPLEMENTATION THERAPY
     Dosage: UNK
  13. VITAMIN C                          /00008001/ [Concomitant]
     Indication: PRODUCT USED FOR UNKNOWN INDICATION
     Dosage: UNK
  14. VITAMIN D                          /00107901/ [Concomitant]
     Indication: PRODUCT USED FOR UNKNOWN INDICATION
     Dosage: UNK
  15. OMEGA 3 [Concomitant]
     Indication: PRODUCT USED FOR UNKNOWN INDICATION
     Dosage: UNK
  16. VITAMIN B6 [Concomitant]
     Indication: SUPPLEMENTATION THERAPY
     Dosage: UNK
  17. OCUVITE                            /01053801/ [Concomitant]
     Indication: SUPPLEMENTATION THERAPY
     Dosage: UNK
  18. FISH OIL [Concomitant]
     Indication: SUPPLEMENTATION THERAPY
     Dosage: 1000 MG, QD
  19. GLUCOSAMINE [Concomitant]
     Indication: SUPPLEMENTATION THERAPY
     Dosage: UNK
  20. CALCIUM [Concomitant]
     Indication: SUPPLEMENTATION THERAPY
     Dosage: UNK

REACTIONS (10)
  - Inappropriate schedule of drug administration [Unknown]
  - Visual acuity reduced [Recovering/Resolving]
  - Fall [Recovered/Resolved]
  - Joint injury [Not Recovered/Not Resolved]
  - Eyelid irritation [Recovering/Resolving]
  - Eyelid irritation [Recovered/Resolved]
  - Eyelids pruritus [Recovering/Resolving]
  - Vision blurred [Recovered/Resolved]
  - Lacrimation increased [Recovered/Resolved]
  - Inappropriate schedule of drug administration [Unknown]
